FAERS Safety Report 5392698-9 (Version None)
Quarter: 2007Q3

REPORT INFORMATION
  Report Type: 
  Country: None (occurrence: None)
  Receive Date: 20070720
  Receipt Date: 20070710
  Transmission Date: 20080115
  Serious: Yes (Other)
  Sender: FDA-Public Use
  Company Number: US-PFIZER INC-2007058498

PATIENT
  Sex: Female
  Weight: 63.636 kg

DRUGS (5)
  1. CHANTIX [Suspect]
     Indication: SMOKING CESSATION THERAPY
     Dates: start: 20070414, end: 20070707
  2. ALPRAZOLAM [Suspect]
     Indication: ANXIETY
  3. REGLAN [Suspect]
     Dates: start: 20070705, end: 20070701
  4. ALL OTHER THERAPEUTIC PRODUCTS [Suspect]
     Indication: ANXIETY
     Dates: start: 20070706, end: 20070706
  5. PREVACID [Concomitant]

REACTIONS (9)
  - ANXIETY [None]
  - FATIGUE [None]
  - FEELING JITTERY [None]
  - INCREASED APPETITE [None]
  - NAUSEA [None]
  - OESOPHAGEAL DILATATION [None]
  - PALPITATIONS [None]
  - PULSE ABNORMAL [None]
  - THROAT TIGHTNESS [None]
